FAERS Safety Report 4753575-7 (Version None)
Quarter: 2005Q3

REPORT INFORMATION
  Report Type: 
  Country: None (occurrence: None)
  Receive Date: 20050826
  Receipt Date: 20050816
  Transmission Date: 20060218
  Serious: Yes (Other)
  Sender: FDA-Public Use
  Company Number: GB-JNJFOC-20050704266

PATIENT
  Sex: Female

DRUGS (3)
  1. RISPERDAL CONSTA [Suspect]
     Indication: DRUG USE FOR UNKNOWN INDICATION
     Route: 030
  2. DEPAKOTE [Concomitant]
     Indication: AFFECTIVE DISORDER
  3. METHOTRIMEPRAZINE [Concomitant]
     Dosage: TAKEN AS REQUIRED

REACTIONS (1)
  - ELECTROCARDIOGRAM QT PROLONGED [None]
